FAERS Safety Report 9602577 (Version 1)
Quarter: 2013Q4

REPORT INFORMATION
  Report Type: Spontaneous
  Country: US (occurrence: US)
  Receive Date: 20131007
  Receipt Date: 20131007
  Transmission Date: 20140711
  Serious: No
  Sender: FDA-Public Use
  Company Number: US-PFIZER INC-2013281848

PATIENT
  Age: 11 Month
  Sex: Female
  Weight: 9.07 kg

DRUGS (1)
  1. CHILDREN^S MOTRIN [Suspect]
     Indication: PYREXIA
     Dosage: 3 DOSES, UNK
     Route: 048
     Dates: start: 20130903, end: 20130905

REACTIONS (1)
  - Rash generalised [Not Recovered/Not Resolved]
